FAERS Safety Report 4688740-0 (Version None)
Quarter: 2005Q2

REPORT INFORMATION
  Report Type: 
  Country: None (occurrence: None)
  Receive Date: 20050613
  Receipt Date: 20050603
  Transmission Date: 20051028
  Serious: Yes (Other)
  Sender: FDA-Public Use
  Company Number: PHBS2005BE07967

PATIENT
  Age: 73 Year
  Sex: Female

DRUGS (1)
  1. AREDIA [Suspect]
     Indication: OSTEOPOROSIS
     Route: 065

REACTIONS (13)
  - ABSCESS SOFT TISSUE [None]
  - ASEPTIC NECROSIS BONE [None]
  - BONE DISORDER [None]
  - BONE OPERATION [None]
  - BONE PAIN [None]
  - BONE TRIMMING [None]
  - EXOSTOSIS [None]
  - LYMPHADENOPATHY [None]
  - PATHOLOGICAL FRACTURE [None]
  - PRIMARY SEQUESTRUM [None]
  - SEQUESTRECTOMY [None]
  - TOOTH EXTRACTION [None]
  - WOUND DEBRIDEMENT [None]
